FAERS Safety Report 9935157 (Version 4)
Quarter: 2014Q2

REPORT INFORMATION
  Report Type: Spontaneous
  Country: FR (occurrence: FR)
  Receive Date: 20140228
  Receipt Date: 20140425
  Transmission Date: 20141212
  Serious: Yes (Hospitalization, Other)
  Sender: FDA-Public Use
  Company Number: FR-PFIZER INC-2014054807

PATIENT
  Age: 73 Year
  Sex: Female

DRUGS (18)
  1. XANAX [Suspect]
     Dosage: 0.5 MG, SINGLE
     Route: 048
     Dates: start: 20130929, end: 20130930
  2. PANTOPRAZOLE [Suspect]
     Dosage: UNK
     Route: 048
     Dates: start: 20130930, end: 20131002
  3. PROPOFOL PANPHARMA [Suspect]
     Dosage: 200 MG, SINGLE
     Route: 042
     Dates: start: 20130930, end: 20130930
  4. MIDAZOLAM HYDROCHLORIDE [Suspect]
     Dosage: 2 MG, SINGLE
     Route: 042
     Dates: start: 20130930, end: 20130930
  5. TRACRIUM [Suspect]
     Dosage: 1 DF, SINGLE
     Route: 042
     Dates: start: 20130930, end: 20130930
  6. DEXAMETHASONE [Suspect]
     Dosage: 8 MG, SINGLE
     Route: 042
     Dates: start: 20130930, end: 20130930
  7. KETAMINE HYDROCHLORIDE [Suspect]
     Dosage: 15 MG, SINGLE
     Route: 042
     Dates: start: 20130930, end: 20130930
  8. SUFENTA [Suspect]
     Dosage: 10 MG, SINGLE
     Route: 042
     Dates: start: 20130930, end: 20130930
  9. ACUPAN [Suspect]
     Dosage: 20 MG, SINGLE
     Route: 042
     Dates: start: 20130930, end: 20130930
  10. EXACYL [Suspect]
     Dosage: 2 DF, SINGLE
     Route: 042
     Dates: start: 20130930, end: 20130930
  11. NAROPEINE [Suspect]
     Dosage: 20 ML AT 2%, SINGLE
     Route: 042
     Dates: start: 20130930, end: 20130930
  12. EPREX [Suspect]
     Dosage: 40000 IU/ML, SINGLE
     Route: 042
     Dates: start: 20130930, end: 20130930
  13. BI-PROFENID [Suspect]
     Dosage: UNK
     Route: 048
     Dates: start: 20130930, end: 20131002
  14. PERFALGAN [Concomitant]
     Dosage: 1 G, 1X/DAY
     Route: 042
     Dates: start: 20130930
  15. ACTISKENAN [Concomitant]
     Dosage: 10 MG, UNK
     Route: 048
     Dates: start: 20130930
  16. RAMIPRIL ACTAVIS [Concomitant]
     Dosage: 10 MG, DAILY CHRONIC TREATMENT
     Dates: end: 20130928
  17. LEVOTHYROX [Concomitant]
     Dosage: 75 UG, DAILY CHRONIC TREATMENT
  18. LAROXYL [Concomitant]
     Dosage: 25 MG, DAILY CHRONIC TREATMENT

REACTIONS (4)
  - Pancreatitis acute [Recovered/Resolved]
  - Lipase increased [Recovered/Resolved]
  - Renal failure acute [Recovered/Resolved]
  - Ileus [Recovered/Resolved]
